FAERS Safety Report 8718445 (Version 2)
Quarter: 2014Q1

REPORT INFORMATION
  Report Type: Report from Study
  Country: US (occurrence: US)
  Receive Date: 20120810
  Receipt Date: 20140304
  Transmission Date: 20141002
  Serious: Yes (Hospitalization, Other)
  Sender: FDA-Public Use
  Company Number: US-ROCHE-1099519

PATIENT
  Age: 67 Year
  Sex: Male

DRUGS (1)
  1. RITUXAN [Suspect]
     Indication: NON-HODGKIN^S LYMPHOMA
     Dosage: LAST DOSE ON 12/DEC/2011
     Route: 042
     Dates: start: 2005, end: 2011

REACTIONS (6)
  - Gastric ulcer haemorrhage [Unknown]
  - Tibia fracture [Recovered/Resolved]
  - Balance disorder [Unknown]
  - Dizziness [Unknown]
  - Tremor [Unknown]
  - Dyspnoea [Unknown]
